FAERS Safety Report 22648218 (Version 1)
Quarter: 2023Q2

REPORT INFORMATION
  Report Type: Spontaneous
  Country: US (occurrence: US)
  Receive Date: 20230628
  Receipt Date: 20230628
  Transmission Date: 20230722
  Serious: No
  Sender: FDA-Public Use
  Company Number: US-ELI_LILLY_AND_COMPANY-US202306016797

PATIENT
  Age: 76 Year
  Sex: Male

DRUGS (3)
  1. FORTEO [Suspect]
     Active Substance: TERIPARATIDE
     Indication: Osteoporosis
     Dosage: UNK UNK, UNKNOWN
     Route: 065
  2. FORTEO [Suspect]
     Active Substance: TERIPARATIDE
     Indication: Spinal fracture
  3. STRONTIUM MONOCITRATE [Concomitant]
     Active Substance: STRONTIUM MONOCITRATE
     Indication: Product used for unknown indication
     Dosage: UNK
     Dates: start: 202301

REACTIONS (9)
  - Fatigue [Unknown]
  - Confusional state [Unknown]
  - Frustration tolerance decreased [Unknown]
  - Irritability [Unknown]
  - Somnolence [Unknown]
  - Fumbling [Unknown]
  - Asthenia [Unknown]
  - Headache [Unknown]
  - Dizziness [Unknown]
